FAERS Safety Report 8722681 (Version 2)
Quarter: 2012Q4

REPORT INFORMATION
  Report Type: 
  Country: CN (occurrence: CN)
  Receive Date: 20120814
  Receipt Date: 20120912
  Transmission Date: 20130627
  Serious: Yes (Death, Life-Threatening, Hospitalization)
  Sender: FDA-Public Use
  Company Number: CN-ROCHE-1100700

PATIENT
  Age: 58 Year
  Sex: Female

DRUGS (1)
  1. HERCEPTIN [Suspect]
     Indication: BREAST CANCER METASTATIC
     Route: 065
     Dates: start: 20120322

REACTIONS (5)
  - Pulmonary embolism [Unknown]
  - Pleural effusion [Unknown]
  - Dyspnoea [Unknown]
  - Disease progression [Fatal]
  - Pulmonary embolism [Fatal]
